FAERS Safety Report 5795257-9 (Version None)
Quarter: 2008Q2

REPORT INFORMATION
  Report Type: 
  Country: None (occurrence: None)
  Receive Date: 20080626
  Receipt Date: 20080618
  Transmission Date: 20081010
  Serious: Yes (Hospitalization)
  Sender: FDA-Public Use
  Company Number: CHPA2008US10297

PATIENT
  Age: 74 Year
  Sex: Female

DRUGS (1)
  1. LAMISIL AT [Suspect]
     Indication: TINEA PEDIS
     Dosage: TOPICAL
     Route: 061

REACTIONS (5)
  - ABDOMINAL PAIN UPPER [None]
  - HEADACHE [None]
  - HYPERSENSITIVITY [None]
  - PAIN [None]
  - PNEUMONIA [None]
